FAERS Safety Report 17185277 (Version 1)
Quarter: 2019Q4

REPORT INFORMATION
  Report Type: Spontaneous
  Country: US (occurrence: US)
  Receive Date: 20191220
  Receipt Date: 20191220
  Transmission Date: 20200122
  Serious: Yes (Other)
  Sender: FDA-Public Use
  Company Number: US-THERAPEUTICSMD-2019TMD04262

PATIENT
  Age: 76 Year
  Sex: Female
  Weight: 83.9 kg

DRUGS (4)
  1. FENOFIBRATE. [Concomitant]
     Active Substance: FENOFIBRATE
  2. LISINOPRIL. [Concomitant]
     Active Substance: LISINOPRIL
  3. IMVEXXY [Suspect]
     Active Substance: ESTRADIOL
     Indication: VULVOVAGINAL DRYNESS
  4. IMVEXXY [Suspect]
     Active Substance: ESTRADIOL
     Indication: BLADDER PROLAPSE
     Dosage: 10 ?G, 2X/WEEK BEFORE BEDTIME
     Route: 067
     Dates: start: 20190912, end: 20191013

REACTIONS (8)
  - Off label use [Recovered/Resolved]
  - Epistaxis [Recovered/Resolved]
  - Erythema [Recovered/Resolved]
  - Blister [Recovered/Resolved]
  - Visual impairment [Recovered/Resolved]
  - Skin exfoliation [Recovered/Resolved]
  - Peripheral swelling [Recovered/Resolved]
  - Hypertension [Recovered/Resolved]

NARRATIVE: CASE EVENT DATE: 2019
